FAERS Safety Report 5460292-7 (Version None)
Quarter: 2007Q3

REPORT INFORMATION
  Report Type: 
  Country: None (occurrence: None)
  Receive Date: 20070919
  Receipt Date: 20070618
  Transmission Date: 20080115
  Serious: Yes (Hospitalization)
  Sender: FDA-Public Use
  Company Number: US-ASTRAZENECA-2007UW14424

PATIENT
  Age: 25 Year
  Sex: Male
  Weight: 145.1 kg

DRUGS (3)
  1. SEROQUEL [Suspect]
     Indication: BIPOLAR I DISORDER
     Dosage: 400 MG QHS + 200 MG QAM
     Route: 048
  2. KLONOPIN [Concomitant]
  3. MELATONIN [Concomitant]

REACTIONS (4)
  - ASTHENIA [None]
  - DEPRESSION [None]
  - INSOMNIA [None]
  - PARANOIA [None]
